FAERS Safety Report 19870472 (Version 1)
Quarter: 2021Q3

REPORT INFORMATION
  Report Type: Report from Study
  Country: KR (occurrence: KR)
  Receive Date: 20210922
  Receipt Date: 20210922
  Transmission Date: 20211014
  Serious: Yes (Hospitalization)
  Sender: FDA-Public Use
  Company Number: KR-ROCHE-2045501

PATIENT
  Age: 52 Year
  Sex: Female
  Weight: 70.5 kg

DRUGS (41)
  1. PALONOSETRON. [Concomitant]
     Active Substance: PALONOSETRON HYDROCHLORIDE
     Indication: PREMEDICATION
     Dates: start: 20171211, end: 20171211
  2. TAGAMET [Concomitant]
     Active Substance: CIMETIDINE
     Dates: start: 20171204, end: 20171204
  3. RANITIDINE. [Concomitant]
     Active Substance: RANITIDINE
     Dates: start: 20171227
  4. ESOMEPRAZOLE. [Concomitant]
     Active Substance: ESOMEPRAZOLE MAGNESIUM
     Dates: start: 20171207, end: 20171208
  5. KETOPROFEN. [Concomitant]
     Active Substance: KETOPROFEN
     Indication: ABDOMINAL PAIN
     Dates: start: 20171209, end: 20171209
  6. PROPACETAMOL [Concomitant]
     Active Substance: PROPACETAMOL
     Dates: start: 20171219, end: 20171222
  7. ERTAPENEM. [Concomitant]
     Active Substance: ERTAPENEM SODIUM
     Indication: ANTIBIOTIC THERAPY
     Dates: start: 20171220, end: 20171221
  8. CEFTRIAXONE SODIUM. [Concomitant]
     Active Substance: CEFTRIAXONE SODIUM
     Indication: ANTIBIOTIC THERAPY
     Dates: start: 20171219, end: 20171219
  9. CARBOPLATIN. [Suspect]
     Active Substance: CARBOPLATIN
     Indication: OVARIAN CANCER
     Dosage: MOST RECENT DOSE (785 MG) ON 11/DEC/2017?AUC 6 MG/ML/MIN
     Route: 042
     Dates: start: 20171121
  10. CIMETIDINE [Concomitant]
     Active Substance: CIMETIDINE
     Indication: PREMEDICATION
     Dates: start: 20171211, end: 20171211
  11. RECOMIDE [Concomitant]
     Dates: start: 20171204, end: 20171204
  12. TARON (SOUTH KOREA) [Concomitant]
     Dates: start: 20171204, end: 20171204
  13. ITOPRIDE HYDROCHLORIDE [Concomitant]
     Active Substance: ITOPRIDE HYDROCHLORIDE
     Dates: start: 20171201, end: 20171201
  14. BEVACIZUMAB. [Suspect]
     Active Substance: BEVACIZUMAB
     Indication: OVARIAN CANCER
     Dosage: MOST RECENT DOSE (1131 MG) ON 11/DEC/2017
     Route: 042
     Dates: start: 20171211
  15. DEXAMETHASONE. [Concomitant]
     Active Substance: DEXAMETHASONE
     Route: 042
     Dates: start: 20171211, end: 20171211
  16. PALONOSETRON. [Concomitant]
     Active Substance: PALONOSETRON HYDROCHLORIDE
     Dates: start: 20171211, end: 20171211
  17. MORPHINE HCL [Concomitant]
     Active Substance: MORPHINE HYDROCHLORIDE
     Indication: ABDOMINAL PAIN
     Dates: start: 20171204, end: 20171205
  18. RANITIDINE. [Concomitant]
     Active Substance: RANITIDINE
     Indication: GASTROINTESTINAL DISORDER
     Dates: start: 20171205, end: 20171208
  19. METOCLOPRAMIDE. [Concomitant]
     Active Substance: METOCLOPRAMIDE
     Dates: start: 20171222, end: 20171222
  20. ACETAMINOPHEN. [Concomitant]
     Active Substance: ACETAMINOPHEN
     Dates: start: 20171219, end: 20171220
  21. LACTULOSE. [Concomitant]
     Active Substance: LACTULOSE
     Indication: CONSTIPATION
     Dates: start: 20171207, end: 20171208
  22. ATEZOLIZUMAB. [Suspect]
     Active Substance: ATEZOLIZUMAB
     Indication: OVARIAN CANCER
     Dosage: MOST RECENT DOSE ON 11/DEC/2017
     Route: 042
     Dates: start: 20171121
  23. VITIS VINIFERA (GRAPE) FLOWER EXTRACT [Concomitant]
     Active Substance: VITIS VINIFERA FLOWERING TOP
     Dosage: BLOOD CIRCULATION AND LYMPHEDEMA DECREASE
     Dates: start: 20171101, end: 20180315
  24. RECOMIDE [Concomitant]
     Indication: GASTROINTESTINAL DISORDER
     Dates: start: 20171201, end: 20171201
  25. SCOPOLAMINE BUTYLBROMIDE [Concomitant]
     Active Substance: SCOPOLAMINE
     Indication: ABDOMINAL PAIN
     Dates: start: 20171204, end: 20171205
  26. RANITIDINE. [Concomitant]
     Active Substance: RANITIDINE
     Dates: start: 20171205, end: 20171208
  27. BENZETHONIUM [Concomitant]
     Dosage: 0.01% 100ML
     Dates: start: 20171120
  28. CIMETIDINE [Concomitant]
     Active Substance: CIMETIDINE
     Dates: start: 20171211, end: 20171211
  29. TARON (SOUTH KOREA) [Concomitant]
     Dates: start: 20171201, end: 20171201
  30. KETOROLAC [Concomitant]
     Active Substance: KETOROLAC TROMETHAMINE
     Dates: start: 20171221, end: 20171221
  31. ESOMEPRAZOLE. [Concomitant]
     Active Substance: ESOMEPRAZOLE MAGNESIUM
     Indication: GASTROINTESTINAL DISORDER
     Dates: start: 20171207, end: 20171208
  32. KCL [Concomitant]
     Active Substance: POTASSIUM CHLORIDE
     Dosage: IN NORMAL SALINE 20MEQ/100 ML
     Dates: start: 20171220, end: 20171220
  33. FURTMAN [Concomitant]
     Dates: start: 20171224, end: 20171224
  34. CIPROFLOXACIN. [Concomitant]
     Active Substance: CIPROFLOXACIN
     Dates: start: 20171227
  35. PACLITAXEL. [Suspect]
     Active Substance: PACLITAXEL
     Indication: OVARIAN CANCER
     Dosage: MOST RECENT DOSE (301 MG) ON 11/DEC/2017?ON DAY 1 OF EACH 21?DAY CYCLE
     Route: 042
     Dates: start: 20171121
  36. DEXAMETHASONE. [Concomitant]
     Active Substance: DEXAMETHASONE
     Indication: PREMEDICATION
     Route: 042
     Dates: start: 20171211, end: 20171211
  37. CHLORPHENIRAMINE. [Concomitant]
     Active Substance: CHLORPHENIRAMINE
     Indication: PREMEDICATION
     Dates: start: 20171211, end: 20171211
  38. CHLORPHENIRAMINE. [Concomitant]
     Active Substance: CHLORPHENIRAMINE
     Dates: start: 20171211, end: 20171211
  39. TAGAMET [Concomitant]
     Active Substance: CIMETIDINE
     Indication: GASTROINTESTINAL DISORDER
     Dates: start: 20171204, end: 20171204
  40. METOCLOPRAMIDE. [Concomitant]
     Active Substance: METOCLOPRAMIDE
     Dates: start: 20171204, end: 20171204
  41. KETOROLAC [Concomitant]
     Active Substance: KETOROLAC TROMETHAMINE
     Indication: ABDOMINAL PAIN
     Dates: start: 20171205, end: 20171207

REACTIONS (1)
  - Pyelonephritis acute [Recovered/Resolved]

NARRATIVE: CASE EVENT DATE: 20171218
